FAERS Safety Report 20704259 (Version 1)
Quarter: 2022Q2

REPORT INFORMATION
  Report Type: Spontaneous
  Country: US (occurrence: None)
  Receive Date: 20220412
  Receipt Date: 20220412
  Transmission Date: 20220721
  Serious: Yes (Hospitalization)
  Sender: FDA-Public Use
  Company Number: None

PATIENT
  Age: 55 Year
  Sex: Male

DRUGS (1)
  1. ABIRATERONE [Suspect]
     Active Substance: ABIRATERONE
     Indication: Prostate cancer
     Dosage: FREQUENCY : DAILY;?
     Route: 048
     Dates: start: 202202

REACTIONS (5)
  - Heart rate increased [None]
  - Peripheral swelling [None]
  - Pain [None]
  - Abdominal distension [None]
  - Abdominal distension [None]

NARRATIVE: CASE EVENT DATE: 20220331
